FAERS Safety Report 5102541-0 (Version None)
Quarter: 2006Q3

REPORT INFORMATION
  Report Type: 
  Country: None (occurrence: None)
  Receive Date: 20060912
  Receipt Date: 20060901
  Transmission Date: 20061208
  Serious: Yes (Death, Hospitalization)
  Sender: FDA-Public Use
  Company Number: US-BAYER-200615385BWH

PATIENT
  Age: 58 Year
  Sex: Male
  Weight: 53 kg

DRUGS (1)
  1. SORAFENIB [Suspect]
     Indication: NON-SMALL CELL LUNG CANCER
     Dosage: TOTAL DAILY DOSE: 400 MG  UNIT DOSE: 200 MG
     Route: 048
     Dates: start: 20060721, end: 20060828

REACTIONS (3)
  - DEATH [None]
  - NEUTROPHIL COUNT DECREASED [None]
  - PNEUMONIA [None]
